FAERS Safety Report 11746903 (Version 2)
Quarter: 2015Q4

REPORT INFORMATION
  Report Type: Spontaneous
  Country: IT (occurrence: IT)
  Receive Date: 20151117
  Receipt Date: 20151119
  Transmission Date: 20160304
  Serious: Yes (Death)
  Sender: FDA-Public Use
  Company Number: IT-PFIZER INC-2015386352

PATIENT
  Age: 77 Year
  Sex: Male

DRUGS (10)
  1. PRADAXA [Interacting]
     Active Substance: DABIGATRAN ETEXILATE MESYLATE
     Dosage: 300 MG, DAILY
     Route: 048
     Dates: start: 20150525, end: 20151007
  2. LASITONE [Concomitant]
     Active Substance: FUROSEMIDE\SPIRONOLACTONE
     Dosage: UNK
  3. LASIX [Concomitant]
     Active Substance: FUROSEMIDE
     Dosage: UNK
  4. DEURSIL [Concomitant]
     Active Substance: URSODIOL
     Dosage: UNK
  5. CORDARONE [Suspect]
     Active Substance: AMIODARONE HYDROCHLORIDE
     Dosage: 300 MG, DAILY
     Route: 048
     Dates: start: 20150201, end: 20151007
  6. PANTOPRAZOLE [Concomitant]
     Active Substance: PANTOPRAZOLE SODIUM
     Dosage: UNK
  7. MATRIFEN [Concomitant]
     Active Substance: FENTANYL
     Dosage: UNK
  8. KAMAN [Concomitant]
     Dosage: UNK
  9. BISOPROLOL HEMIFUMARATE [Concomitant]
     Active Substance: BISOPROLOL FUMARATE
     Dosage: UNK
  10. LAEVOLAC [Concomitant]
     Active Substance: LACTULOSE
     Dosage: UNK

REACTIONS (2)
  - Gastrointestinal haemorrhage [Fatal]
  - Drug interaction [Fatal]

NARRATIVE: CASE EVENT DATE: 20151007
